FAERS Safety Report 16012496 (Version 2)
Quarter: 2019Q1

REPORT INFORMATION
  Report Type: Spontaneous
  Country: PL (occurrence: PL)
  Receive Date: 20190227
  Receipt Date: 20190312
  Transmission Date: 20190418
  Serious: Yes (Hospitalization)
  Sender: FDA-Public Use
  Company Number: PL-PFIZER INC-2019076929

PATIENT
  Age: 76 Year
  Sex: Female

DRUGS (5)
  1. DOCETAXEL. [Suspect]
     Active Substance: DOCETAXEL
     Indication: BREAST CANCER
     Dosage: 75 MG/M2, UNK (6 CYCLES)
     Route: 065
     Dates: start: 201503, end: 201508
  2. DOXORUBICIN HCL [Suspect]
     Active Substance: DOXORUBICIN HYDROCHLORIDE
     Indication: BREAST CANCER
     Dosage: 50 MG/M2 (6 CYCLES)
     Route: 065
     Dates: start: 201503, end: 201508
  3. CAPECITABINE. [Suspect]
     Active Substance: CAPECITABINE
     Dosage: UNK
  4. VINORELBINE [Suspect]
     Active Substance: VINORELBINE\VINORELBINE TARTRATE
     Indication: METASTASES TO SKIN
     Dosage: 40 MG, Q3W
     Route: 048
     Dates: start: 201707
  5. CAPECITABINE. [Suspect]
     Active Substance: CAPECITABINE
     Indication: METASTASES TO SKIN
     Dosage: 500 MG, TID
     Route: 048
     Dates: start: 201707

REACTIONS (7)
  - Drug intolerance [Unknown]
  - Vomiting [Unknown]
  - Thrombocytopenic purpura [Unknown]
  - Febrile neutropenia [Unknown]
  - Diarrhoea [Unknown]
  - Anaemia [Unknown]
  - Nausea [Unknown]
